FAERS Safety Report 8139247-X (Version None)
Quarter: 2012Q1

REPORT INFORMATION
  Report Type: 
  Country: None (occurrence: None)
  Receive Date: 20120215
  Receipt Date: 20120210
  Transmission Date: 20120608
  Serious: Yes (Life-Threatening, Hospitalization, Other)
  Sender: FDA-Public Use
  Company Number: DE-ABBOTT-12P-062-0895347-00

PATIENT
  Sex: Male
  Weight: 120 kg

DRUGS (1)
  1. HUMIRA [Suspect]
     Indication: PSORIATIC ARTHROPATHY
     Route: 058
     Dates: start: 20081101, end: 20111201

REACTIONS (2)
  - ACUTE ABDOMEN [None]
  - NON-HODGKIN'S LYMPHOMA [None]
